FAERS Safety Report 16822044 (Version 2)
Quarter: 2021Q4

REPORT INFORMATION
  Report Type: Report from Study
  Country: US (occurrence: US)
  Receive Date: 20190918
  Receipt Date: 20211129
  Transmission Date: 20220303
  Serious: No
  Sender: FDA-Public Use
  Company Number: US-AMGEN-USASP2019151396

PATIENT
  Age: 75 Year
  Sex: Female

DRUGS (2)
  1. ENBREL [Suspect]
     Active Substance: ETANERCEPT
     Indication: Rheumatoid arthritis
     Dosage: 50 MILLIGRAM, QWK
     Route: 065
  2. ENBREL [Suspect]
     Active Substance: ETANERCEPT
     Dosage: 50 MILLIGRAM, QWK (TWO 25MG DOSES ADMINISTERED ON THE SAME DAY IN DIFFERENT ARMS)
     Route: 065

REACTIONS (2)
  - Injury associated with device [Unknown]
  - Injection site pain [Unknown]

NARRATIVE: CASE EVENT DATE: 20190904
